FAERS Safety Report 9964047 (Version 5)
Quarter: 2014Q2

REPORT INFORMATION
  Report Type: Report from Study
  Country: IE (occurrence: IE)
  Receive Date: 20140305
  Receipt Date: 20140513
  Transmission Date: 20141212
  Serious: Yes (Hospitalization)
  Sender: FDA-Public Use
  Company Number: IE-GLAXOSMITHKLINE-B0964353B

PATIENT
  Age: 45 Year
  Sex: Female

DRUGS (6)
  1. TRAMETINIB [Suspect]
     Indication: METASTATIC MALIGNANT MELANOMA
     Dosage: 2MG PER DAY
     Route: 048
     Dates: start: 20131223
  2. DABRAFENIB [Suspect]
     Indication: METASTATIC MALIGNANT MELANOMA
     Dosage: 150MG TWICE PER DAY
     Route: 048
     Dates: start: 20131223
  3. ELTROXIN [Concomitant]
     Dosage: 100MCG PER DAY
  4. PANTOPRAZOLE [Concomitant]
     Dosage: 20MG PER DAY
  5. CYCLIZINE [Concomitant]
     Dosage: 50MG AS REQUIRED
  6. SEROQUEL [Concomitant]
     Indication: SLEEP DISORDER
     Dosage: 12.5MG AS REQUIRED

REACTIONS (1)
  - Convulsion [Recovered/Resolved]
